FAERS Safety Report 7898049-X (Version None)
Quarter: 2011Q4

REPORT INFORMATION
  Report Type: 
  Country: None (occurrence: None)
  Receive Date: 20111107
  Receipt Date: 20111107
  Transmission Date: 20120403
  Serious: No
  Sender: FDA-Public Use
  Company Number: None

PATIENT
  Age: 67 Year
  Weight: 74.389 kg

DRUGS (1)
  1. PRADAXA [Suspect]
     Indication: THROMBOSIS
     Dates: start: 20111015, end: 20111105

REACTIONS (4)
  - RASH [None]
  - ASTHENIA [None]
  - GASTRIC DISORDER [None]
  - GASTROOESOPHAGEAL REFLUX DISEASE [None]
